FAERS Safety Report 7726675-7 (Version None)
Quarter: 2011Q3

REPORT INFORMATION
  Report Type: 
  Country: None (occurrence: None)
  Receive Date: 20110902
  Receipt Date: 20110823
  Transmission Date: 20111222
  Serious: Yes (Life-Threatening, Hospitalization)
  Sender: FDA-Public Use
  Company Number: GB-JNJFOC-044-0184-950001

PATIENT
  Age: 28 Year
  Sex: Female

DRUGS (1)
  1. BENYLIN [Suspect]
     Indication: COUGH
     Route: 048
     Dates: start: 19950211, end: 19950211

REACTIONS (8)
  - SYNCOPE [None]
  - SWOLLEN TONGUE [None]
  - SWELLING FACE [None]
  - HYPERSENSITIVITY [None]
  - PHARYNGEAL OEDEMA [None]
  - TINNITUS [None]
  - DIZZINESS [None]
  - MUSCULAR WEAKNESS [None]
